FAERS Safety Report 10800531 (Version 1)
Quarter: 2015Q1

REPORT INFORMATION
  Report Type: Spontaneous
  Country: US (occurrence: US)
  Receive Date: 20150216
  Receipt Date: 20150216
  Transmission Date: 20150721
  Serious: No
  Sender: FDA-Public Use
  Company Number: US-ALLERGAN-1406984US

PATIENT
  Age: 83 Year
  Sex: Female

DRUGS (11)
  1. RESTASIS [Suspect]
     Active Substance: CYCLOSPORINE
     Indication: CATARACT
  2. ZETIA [Concomitant]
     Active Substance: EZETIMIBE
     Indication: BLOOD CHOLESTEROL
     Dosage: 1 DF, QD
     Route: 048
     Dates: start: 2001
  3. RESTASIS [Suspect]
     Active Substance: CYCLOSPORINE
     Indication: DRY EYE
     Dosage: 2 GTT, BID
     Route: 047
     Dates: start: 201312, end: 201403
  4. LOSARTAN [Concomitant]
     Active Substance: LOSARTAN
     Indication: HYPERTENSION
     Dosage: 25 MG, QD
     Route: 048
     Dates: start: 2001
  5. COREG [Concomitant]
     Active Substance: CARVEDILOL
     Dosage: 20 MG, QD
     Route: 065
     Dates: start: 2001
  6. SPIRONOLACTONE. [Concomitant]
     Active Substance: SPIRONOLACTONE
     Indication: DIURETIC THERAPY
     Dosage: 25 MG, QD
     Route: 048
     Dates: start: 2001
  7. WARFARIN [Concomitant]
     Active Substance: WARFARIN
     Indication: PROTHROMBIN TIME
     Dosage: VARIED DOSE [DEPENDENT ON PT RESULTS], QHS
     Route: 048
     Dates: start: 2001
  8. NEXIUM [Concomitant]
     Active Substance: ESOMEPRAZOLE MAGNESIUM
     Indication: GASTRIC DISORDER
     Dosage: 40 MG, QD
     Route: 048
     Dates: start: 2001
  9. DIAZEPAM. [Concomitant]
     Active Substance: DIAZEPAM
     Indication: NERVOUS SYSTEM DISORDER
     Dosage: 5 MG, BID
     Route: 048
     Dates: start: 2001
  10. FUROSEMIDE. [Concomitant]
     Active Substance: FUROSEMIDE
     Indication: DIURETIC THERAPY
     Dosage: 40 MG, QD
     Route: 048
     Dates: start: 2001
  11. REFRESH OPTIVE [Concomitant]
     Active Substance: CARBOXYMETHYLCELLULOSE SODIUM\GLYCERIN
     Indication: DRY EYE
     Dosage: 2 GTT, BID
     Route: 047

REACTIONS (13)
  - Lacrimation increased [Unknown]
  - Vitreous floaters [Unknown]
  - Ocular discomfort [Unknown]
  - Off label use [Unknown]
  - Eye irritation [Unknown]
  - Decreased appetite [Unknown]
  - Eye pain [Unknown]
  - Erythema of eyelid [Unknown]
  - Rhinorrhoea [Unknown]
  - Eye haemorrhage [Unknown]
  - Abdominal discomfort [Unknown]
  - Ocular hyperaemia [Unknown]
  - Prothrombin time abnormal [Unknown]

NARRATIVE: CASE EVENT DATE: 20140404
